FAERS Safety Report 16833914 (Version 1)
Quarter: 2019Q3

REPORT INFORMATION
  Report Type: Spontaneous
  Country: CA (occurrence: CA)
  Receive Date: 20190920
  Receipt Date: 20190920
  Transmission Date: 20191005
  Serious: Yes (Other)
  Sender: FDA-Public Use
  Company Number: CA-BIOMARINAP-CA-2019-125736

PATIENT

DRUGS (4)
  1. EMLA [LIDOCAINE;PRILOCAINE] [Concomitant]
     Indication: PREMEDICATION
     Dosage: UNK, SINGLE
     Route: 061
  2. NAGLAZYME [Suspect]
     Active Substance: GALSULFASE
     Indication: MUCOPOLYSACCHARIDOSIS VI
     Dosage: 1 MILLIGRAM/KILOGRAM, QW
     Route: 042
     Dates: start: 20160719
  3. TYLENOL [Concomitant]
     Active Substance: ACETAMINOPHEN
     Indication: PREMEDICATION
     Dosage: 195 MILLIGRAM, SINGLE
     Route: 048
  4. BENADRYL [Concomitant]
     Active Substance: DIPHENHYDRAMINE HYDROCHLORIDE
     Indication: PREMEDICATION
     Dosage: 13 MILLIGRAM, SINGLE
     Route: 048

REACTIONS (2)
  - Pain [Recovering/Resolving]
  - Knee operation [Recovering/Resolving]

NARRATIVE: CASE EVENT DATE: 20190911
